FAERS Safety Report 8258176-4 (Version None)
Quarter: 2012Q2

REPORT INFORMATION
  Report Type: 
  Country: None (occurrence: None)
  Receive Date: 20120404
  Receipt Date: 20120328
  Transmission Date: 20120825
  Serious: Yes (Other)
  Sender: FDA-Public Use
  Company Number: PHHY2012JP013916

PATIENT
  Age: 31 Year
  Sex: Male

DRUGS (15)
  1. LIPITOR [Concomitant]
     Dosage: 5 MG, UNK
     Route: 048
     Dates: start: 20111220
  2. DOPACOL [Concomitant]
     Dosage: 100 MG, UNK
     Route: 048
  3. MAGMITT [Concomitant]
     Dosage: 1320 MG, UNK
     Route: 048
  4. METHYCOBAL [Concomitant]
     Dosage: 500 MG, UNK
     Route: 048
  5. REBAMIPIDE [Concomitant]
     Dosage: 200 MG, UNK
     Route: 048
  6. WARKMIN [Concomitant]
     Dosage: 0.25 MG, UNK
     Route: 048
  7. GILENYA [Suspect]
     Indication: MULTIPLE SCLEROSIS
     Dosage: 0.5 MG, UNK
     Route: 048
     Dates: start: 20120117, end: 20120214
  8. RISUMIC [Concomitant]
     Dosage: 10 MG, UNK
     Route: 048
  9. RABEPRAZOLE SODIUM [Concomitant]
     Dosage: 10 MG, UNK
     Route: 048
     Dates: start: 20111220
  10. PURSENNID [Concomitant]
     Dosage: 2 DF, UNK
     Route: 048
  11. WARFARIN SODIUM [Concomitant]
     Dates: start: 20111220, end: 20120224
  12. LIORESAL [Concomitant]
     Dosage: 30 MG, UNK
     Route: 048
     Dates: start: 20111220
  13. DIAZEPAM [Concomitant]
     Dosage: 2 MG, UNK
     Route: 048
  14. ALLEGRA [Concomitant]
     Dosage: 60 MG, UNK
     Route: 048
  15. ASPARA-CA [Concomitant]
     Dosage: 200 MG, UNK
     Route: 048

REACTIONS (4)
  - RETINAL HAEMORRHAGE [None]
  - LYMPHOCYTE COUNT DECREASED [None]
  - MACULAR OEDEMA [None]
  - WHITE BLOOD CELL COUNT DECREASED [None]
